FAERS Safety Report 7622633-1 (Version None)
Quarter: 2011Q3

REPORT INFORMATION
  Report Type: 
  Country: None (occurrence: None)
  Receive Date: 20110712
  Receipt Date: 20110627
  Transmission Date: 20111222
  Serious: Yes (Hospitalization)
  Sender: FDA-Public Use
  Company Number: 2011MA008127

PATIENT
  Age: 64 Year
  Sex: Female

DRUGS (2)
  1. RISPERIDONE [Suspect]
     Indication: MAJOR DEPRESSION
     Dosage: 4 MG;QD
  2. RISPERIDONE [Suspect]
     Indication: DELUSIONAL DISORDER, UNSPECIFIED TYPE
     Dosage: 4 MG;QD

REACTIONS (5)
  - EXTRAPYRAMIDAL DISORDER [None]
  - BLOOD THYROID STIMULATING HORMONE DECREASED [None]
  - THYROID NEOPLASM [None]
  - TREMOR [None]
  - MUSCLE RIGIDITY [None]
